FAERS Safety Report 26034830 (Version 1)
Quarter: 2025Q4

REPORT INFORMATION
  Report Type: Report from Study
  Country: US (occurrence: US)
  Receive Date: 20251112
  Receipt Date: 20251112
  Transmission Date: 20260118
  Serious: Yes (Other)
  Sender: NOVARTIS
  Company Number: US-002147023-NVSC2025US162562

PATIENT
  Age: 52 Year
  Sex: Male
  Weight: 116.74 kg

DRUGS (2)
  1. VANRAFIA [Suspect]
     Active Substance: ATRASENTAN HYDROCHLORIDE
     Indication: IgA nephropathy
     Dosage: 0.75 MG
     Route: 048
     Dates: start: 20250828
  2. VANRAFIA [Suspect]
     Active Substance: ATRASENTAN HYDROCHLORIDE
     Dosage: 0.75 MG, QD
     Route: 048
     Dates: start: 20250903, end: 20250930

REACTIONS (3)
  - Acute kidney injury [Recovered/Resolved]
  - Proteinuria [Recovering/Resolving]
  - Blood creatinine increased [Unknown]

NARRATIVE: CASE EVENT DATE: 20250925
